FAERS Safety Report 13449712 (Version 1)
Quarter: 2017Q2

REPORT INFORMATION
  Report Type: Spontaneous
  Country: US (occurrence: US)
  Receive Date: 20170417
  Receipt Date: 20170417
  Transmission Date: 20170830
  Serious: No
  Sender: FDA-Public Use
  Company Number: US-BANPHARM-20164590

PATIENT
  Age: 85 Year
  Sex: Female
  Weight: 76.2 kg

DRUGS (9)
  1. ANTIBIOTICS [Concomitant]
     Active Substance: UNSPECIFIED INGREDIENT
  2. CENTRUM SILVER [Concomitant]
     Active Substance: MINERALS\VITAMINS
  3. ALEVE [Suspect]
     Active Substance: NAPROXEN SODIUM
     Indication: MYALGIA
     Dosage: 1-2 DF, BID,
     Route: 048
     Dates: start: 201512, end: 20160110
  4. HIGH BLOOD PRESSURE PILLS [Concomitant]
  5. THYROID PILLS [Concomitant]
  6. OSTEO-BIFLEX [Concomitant]
  7. CITRACAL - UNKNOWN FORMULA [Concomitant]
  8. SCHIFF OMGEGS 3 WITH KRILL [Concomitant]
  9. BAYER LOW DOSE [Suspect]
     Active Substance: ASPIRIN
     Dosage: 1 DF, QD,

REACTIONS (1)
  - Extra dose administered [Recovered/Resolved]
